FAERS Safety Report 9975534 (Version 1)
Quarter: 2014Q1

REPORT INFORMATION
  Report Type: Spontaneous
  Country: US (occurrence: US)
  Receive Date: 20140306
  Receipt Date: 20140306
  Transmission Date: 20141002
  Serious: Yes (Other)
  Sender: FDA-Public Use
  Company Number: US-BAYER-2014-030397

PATIENT
  Age: 74 Year
  Sex: Female
  Weight: 66 kg

DRUGS (5)
  1. ALKA-SELTZER PLUS ORANGE ZEST COLD FORMULA [Suspect]
     Indication: NASOPHARYNGITIS
     Dosage: 1 DF, ONCE
     Route: 048
     Dates: start: 20140222, end: 20140222
  2. ALEVE CAPLET [Suspect]
     Indication: ANALGESIC THERAPY
     Dosage: 1 DF, ONCE
     Route: 048
  3. BAYER ASPIRIN REGIMEN ADULT LOW STRENGTH [Concomitant]
     Dosage: 1 DF, QD
     Route: 048
  4. CENTRUM SILVER [Concomitant]
  5. METOPROLOL [Concomitant]

REACTIONS (3)
  - Urinary tract infection [Recovered/Resolved]
  - Urinary retention [Recovered/Resolved]
  - Hypoaesthesia oral [Recovered/Resolved]
